FAERS Safety Report 5011143-6 (Version None)
Quarter: 2006Q2

REPORT INFORMATION
  Report Type: 
  Country: None (occurrence: None)
  Receive Date: 20060523
  Receipt Date: 20060509
  Transmission Date: 20061013
  Serious: Yes (Disabling)
  Sender: FDA-Public Use
  Company Number: CERZ-11171

PATIENT
  Age: 58 Year
  Sex: Male
  Weight: 79 kg

DRUGS (1)
  1. CEREZYME [Suspect]
     Indication: GAUCHER'S DISEASE
     Dosage: 2400 UNITS Q2WKS IV
     Route: 042
     Dates: start: 19990401

REACTIONS (2)
  - DISEASE PROGRESSION [None]
  - OSTEONECROSIS [None]
